FAERS Safety Report 14767907 (Version 1)
Quarter: 2018Q2

REPORT INFORMATION
  Report Type: Spontaneous
  Country: US (occurrence: US)
  Receive Date: 20180417
  Receipt Date: 20180417
  Transmission Date: 20180711
  Serious: Yes (Other)
  Sender: FDA-Public Use
  Company Number: US-ALLERGAN-1820485US

PATIENT

DRUGS (1)
  1. CEFTAROLINE FOSAMIL - BP [Suspect]
     Active Substance: CEFTAROLINE FOSAMIL
     Indication: INFECTION
     Dosage: UNK
     Route: 065

REACTIONS (3)
  - Immune-mediated hepatitis [Unknown]
  - Rash maculo-papular [Unknown]
  - Transaminases increased [Unknown]
